FAERS Safety Report 9440193 (Version 2)
Quarter: 2013Q3

REPORT INFORMATION
  Report Type: Spontaneous
  Country: JP (occurrence: JP)
  Receive Date: 20130805
  Receipt Date: 20130812
  Transmission Date: 20140515
  Serious: Yes (Other)
  Sender: FDA-Public Use
  Company Number: PHHY2013JP082968

PATIENT
  Sex: Female

DRUGS (3)
  1. VOLTAREN SR [Suspect]
     Indication: PAIN
     Route: 048
  2. VOLTAREN [Suspect]
     Indication: PAIN
     Dosage: UNK UKN, TID
     Route: 048
  3. LOXONIN [Concomitant]
     Indication: PAIN

REACTIONS (4)
  - Uterine leiomyoma [Unknown]
  - Pneumonia [Unknown]
  - Back pain [Unknown]
  - Drug ineffective [Unknown]
